FAERS Safety Report 22289306 (Version 1)
Quarter: 2023Q2

REPORT INFORMATION
  Report Type: Spontaneous
  Country: US (occurrence: None)
  Receive Date: 20230504
  Receipt Date: 20230504
  Transmission Date: 20230722
  Serious: Yes (unspecified)
  Sender: FDA-Public Use
  Company Number: None

PATIENT
  Age: 82 Year
  Sex: 0
  Weight: 87.75 kg

DRUGS (7)
  1. SOLIQUA 100/33 [Suspect]
     Active Substance: INSULIN GLARGINE\LIXISENATIDE
     Indication: Type 2 diabetes mellitus
     Dosage: FREQUENCY : DAILY;?
     Route: 058
  2. SIMVASTATIN [Concomitant]
     Active Substance: SIMVASTATIN
  3. LISINOPRIL/HCTZ [Concomitant]
  4. CLONAZEPAM [Concomitant]
     Active Substance: CLONAZEPAM
  5. METFORMIN [Concomitant]
     Active Substance: METFORMIN HYDROCHLORIDE
  6. PROPRANOLOL [Concomitant]
     Active Substance: PROPRANOLOL HYDROCHLORIDE
  7. VITAMINS [Concomitant]
     Active Substance: VITAMINS

REACTIONS (7)
  - Accidental exposure to product [None]
  - Exposure via skin contact [None]
  - Vision blurred [None]
  - Nausea [None]
  - Vomiting [None]
  - Intraocular pressure increased [None]
  - Gait disturbance [None]

NARRATIVE: CASE EVENT DATE: 20230403
